FAERS Safety Report 16304607 (Version 1)
Quarter: 2019Q2

REPORT INFORMATION
  Report Type: Spontaneous
  Country: US (occurrence: US)
  Receive Date: 20190510
  Receipt Date: 20190510
  Transmission Date: 20190711
  Serious: Yes (Other)
  Sender: FDA-Public Use
  Company Number: None

PATIENT
  Age: 56 Year
  Sex: Female
  Weight: 55.35 kg

DRUGS (8)
  1. HYDROCODONE [Concomitant]
     Active Substance: HYDROCODONE
  2. CALCIUM SUPPLEMENT [Concomitant]
     Active Substance: CALCIUM
  3. VITAMIN C [Concomitant]
     Active Substance: ASCORBIC ACID
  4. MULTIVITAMIN [Concomitant]
     Active Substance: VITAMINS
  5. EMGALITY [Suspect]
     Active Substance: GALCANEZUMAB-GNLM
     Indication: MIGRAINE
     Dosage: ?          QUANTITY:2 INJECTION(S);OTHER FREQUENCY:ONCE MONTHLY;?
     Route: 058
     Dates: start: 20190412
  6. KLONOPIN [Concomitant]
     Active Substance: CLONAZEPAM
  7. BIOTIN [Concomitant]
     Active Substance: BIOTIN
  8. MAGNESIUM SUPPLEMENT [Concomitant]

REACTIONS (14)
  - Feeling cold [None]
  - Pain [None]
  - Dysarthria [None]
  - Balance disorder [None]
  - Lethargy [None]
  - Stomatitis [None]
  - Musculoskeletal pain [None]
  - Feeling abnormal [None]
  - Chills [None]
  - Somnolence [None]
  - Emotional distress [None]
  - Fatigue [None]
  - Toothache [None]
  - Sleep disorder [None]

NARRATIVE: CASE EVENT DATE: 20190412
